FAERS Safety Report 9153690 (Version 1)
Quarter: 2013Q1

REPORT INFORMATION
  Report Type: Spontaneous
  Country: BR (occurrence: None)
  Receive Date: 20130205
  Receipt Date: 20130205
  Transmission Date: 20140127
  Serious: Yes (Hospitalization)
  Sender: FDA-Public Use
  Company Number: DSU-2013-00831

PATIENT
  Age: 59 Year
  Sex: Male
  Weight: 87 kg

DRUGS (1)
  1. OMETEC HCT [Suspect]
     Dosage: 20/12.5 MG (QD), PER ORAL
     Route: 048
     Dates: start: 20080720

REACTIONS (1)
  - Infarction [None]
